FAERS Safety Report 10284684 (Version 1)
Quarter: 2014Q3

REPORT INFORMATION
  Report Type: Report from Study
  Country: ES (occurrence: ES)
  Receive Date: 20140708
  Receipt Date: 20140708
  Transmission Date: 20150326
  Serious: Yes (Other)
  Sender: FDA-Public Use
  Company Number: ES-VERTEX PHARMACEUTICALS INC-2014-002987

PATIENT
  Age: 54 Year
  Sex: Male

DRUGS (3)
  1. PEGYLATED INTERFERON ALPHA NOS [Suspect]
     Active Substance: PEGINTERFERON ALFA-2A OR PEGINTERFERON ALFA-2B
     Indication: HEPATITIS C
     Dosage: 180 ?G, UNK
     Route: 058
     Dates: start: 201302
  2. RIBAVIRIN. [Suspect]
     Active Substance: RIBAVIRIN
     Indication: HEPATITIS C
     Dosage: 600 MG, BID
     Route: 065
     Dates: start: 201302
  3. TELAPREVIR [Suspect]
     Active Substance: TELAPREVIR
     Indication: HEPATITIS C
     Dosage: 1125 MG, BID
     Route: 065
     Dates: start: 201302

REACTIONS (13)
  - Proctalgia [Recovered/Resolved]
  - Eczema [Recovering/Resolving]
  - Hypertensive crisis [Recovered/Resolved]
  - Dizziness [Recovering/Resolving]
  - Serum ferritin increased [Recovered/Resolved]
  - Asthenia [Recovering/Resolving]
  - Blood uric acid increased [Recovered/Resolved]
  - Pruritus generalised [Recovering/Resolving]
  - Rectal haemorrhage [Recovered/Resolved]
  - Muscle contracture [Recovered/Resolved]
  - Anxiety [Recovered/Resolved]
  - Blood triglycerides increased [Recovered/Resolved]
  - Anorectal discomfort [Recovered/Resolved]

NARRATIVE: CASE EVENT DATE: 201303
